FAERS Safety Report 20889902 (Version 1)
Quarter: 2022Q2

REPORT INFORMATION
  Report Type: Spontaneous
  Country: JP (occurrence: JP)
  Receive Date: 20220530
  Receipt Date: 20220530
  Transmission Date: 20220721
  Serious: Yes (Other)
  Sender: FDA-Public Use
  Company Number: JP-SUN PHARMACEUTICAL INDUSTRIES LTD-2022RR-338399

PATIENT
  Age: 32 Year
  Sex: Female
  Weight: 43.7 kg

DRUGS (6)
  1. MIDAZOLAM [Suspect]
     Active Substance: MIDAZOLAM
     Indication: Wisdom teeth removal
     Dosage: 3 MILLIGRAM, UNK
     Route: 065
  2. MIDAZOLAM [Suspect]
     Active Substance: MIDAZOLAM
     Indication: Sedation
     Dosage: 1 MILLIGRAM EACH TIME, 4 TIMES IN TOTAL
     Route: 065
  3. MIDAZOLAM [Suspect]
     Active Substance: MIDAZOLAM
     Dosage: 3 MILLIGRAM, UNK ON SECOND SURGERY
     Route: 065
  4. DEXMEDETOMIDINE [Suspect]
     Active Substance: DEXMEDETOMIDINE
     Indication: Sedation
     Dosage: 0.4-0.5 MICROGRAM/KG/H
     Route: 065
  5. DEXMEDETOMIDINE [Suspect]
     Active Substance: DEXMEDETOMIDINE
     Indication: Wisdom teeth removal
  6. FENTANYL [Concomitant]
     Active Substance: FENTANYL
     Indication: Pain
     Dosage: 25 MICROGRAM FOR FOUR TIMES
     Route: 065

REACTIONS (3)
  - Respiratory depression [Recovered/Resolved]
  - Glossoptosis [Unknown]
  - Therapeutic product effect incomplete [Unknown]
